FAERS Safety Report 6012678-X (Version None)
Quarter: 2008Q4

REPORT INFORMATION
  Report Type: 
  Country: None (occurrence: None)
  Receive Date: 20081210
  Receipt Date: 20081125
  Transmission Date: 20090506
  Serious: Yes (Death, Hospitalization)
  Sender: FDA-Public Use
  Company Number: ALB-009-08-SA

PATIENT
  Age: 7 Year
  Sex: Male

DRUGS (6)
  1. ALBUMINAR-5 [Suspect]
     Indication: HYPOTENSION
     Dosage: 1000 MG/KG; I.V.
     Route: 042
     Dates: start: 20050521, end: 20080521
  2. ANTIBIOTICS (ANTIBIOTICS) [Concomitant]
  3. DOPAMINE HCL [Concomitant]
  4. IV FLUIDS (FLUIDS) [Concomitant]
  5. MILK (MILK) [Concomitant]
  6. SODIUM BICARBONATE IN PLASTIC CONTAINER [Concomitant]

REACTIONS (4)
  - ABDOMINAL PAIN [None]
  - ACIDOSIS [None]
  - CARDIO-RESPIRATORY ARREST [None]
  - NO THERAPEUTIC RESPONSE [None]
